FAERS Safety Report 4590473-6 (Version None)
Quarter: 2005Q1

REPORT INFORMATION
  Report Type: 
  Country: None (occurrence: None)
  Receive Date: 20050218
  Receipt Date: 20050218
  Transmission Date: 20050727
  Serious: Yes (Death, Hospitalization)
  Sender: FDA-Public Use
  Company Number: None

PATIENT
  Age: 72 Year
  Sex: Male

DRUGS (1)
  1. ENALAPRIL MALEATE [Suspect]
     Indication: HYPERTENSION
     Dosage: BY MOUTH 2 TIMES DAILY
     Route: 048
     Dates: start: 20050111

REACTIONS (3)
  - BLOOD PRESSURE INCREASED [None]
  - INTRACRANIAL ANEURYSM [None]
  - PHARMACEUTICAL PRODUCT COMPLAINT [None]
